FAERS Safety Report 20021044 (Version 3)
Quarter: 2022Q1

REPORT INFORMATION
  Report Type: Report from Study
  Country: US (occurrence: US)
  Receive Date: 20211101
  Receipt Date: 20220216
  Transmission Date: 20220424
  Serious: No
  Sender: FDA-Public Use
  Company Number: US-NOVARTISTESTPH-NVSC2021US249425

PATIENT
  Sex: Female
  Weight: 54.422 kg

DRUGS (1)
  1. TREPROSTINIL [Suspect]
     Active Substance: TREPROSTINIL
     Indication: Pulmonary arterial hypertension
     Dosage: 125 NG/KG/MIN
     Route: 058
     Dates: start: 20210923

REACTIONS (2)
  - Dyspnoea [Unknown]
  - Abscess [Unknown]
